FAERS Safety Report 23248057 (Version 1)
Quarter: 2023Q4

REPORT INFORMATION
  Report Type: Spontaneous
  Country: US (occurrence: US)
  Receive Date: 20231130
  Receipt Date: 20231130
  Transmission Date: 20240110
  Serious: Yes (Other)
  Sender: FDA-Public Use
  Company Number: US-ELI_LILLY_AND_COMPANY-US202311012487

PATIENT
  Sex: Male

DRUGS (4)
  1. HUMALOG [Suspect]
     Active Substance: INSULIN LISPRO
     Indication: Product used for unknown indication
     Dosage: UNK UNK, TID
     Route: 065
  2. HUMALOG [Suspect]
     Active Substance: INSULIN LISPRO
     Dosage: UNK UNK, TID
     Route: 065
  3. TRELSTAR [Concomitant]
     Active Substance: TRIPTORELIN PAMOATE
     Indication: Product used for unknown indication
  4. LEVEMIR [Concomitant]
     Active Substance: INSULIN DETEMIR
     Indication: Product used for unknown indication
     Dosage: UNK UNK, ONCE IN THE MORNING AND ONCE AT NIGHT

REACTIONS (9)
  - Cardiac failure congestive [Unknown]
  - Cardiomyopathy [Unknown]
  - Prostate cancer [Unknown]
  - Insomnia [Unknown]
  - Ejection fraction decreased [Unknown]
  - Renal disorder [Unknown]
  - Hypertension [Unknown]
  - Diabetes mellitus [Unknown]
  - Fluid retention [Unknown]
